FAERS Safety Report 14067269 (Version 1)
Quarter: 2017Q4

REPORT INFORMATION
  Report Type: Spontaneous
  Country: US (occurrence: None)
  Receive Date: 20171009
  Receipt Date: 20171009
  Transmission Date: 20180321
  Serious: Yes (Hospitalization)
  Sender: FDA-Public Use
  Company Number: None

PATIENT
  Age: 56 Year
  Sex: Female

DRUGS (1)
  1. STELARA [Suspect]
     Active Substance: USTEKINUMAB
     Indication: CROHN^S DISEASE
     Dosage: 90 MG/ML Q8 WKS SC
     Route: 058

REACTIONS (5)
  - Muscle spasms [None]
  - Condition aggravated [None]
  - Diarrhoea [None]
  - Dehydration [None]
  - Drug dose omission [None]

NARRATIVE: CASE EVENT DATE: 20170926
